FAERS Safety Report 7110419-6 (Version None)
Quarter: 2010Q4

REPORT INFORMATION
  Report Type: 
  Country: None (occurrence: None)
  Receive Date: 20101118
  Receipt Date: 20101108
  Transmission Date: 20110411
  Serious: Yes (Hospitalization, Other)
  Sender: FDA-Public Use
  Company Number: US-JNJFOC-20101102889

PATIENT
  Sex: Male
  Weight: 54.7 kg

DRUGS (4)
  1. INFLIXIMAB, RECOMBINANT [Suspect]
     Indication: CROHN'S DISEASE
     Route: 042
  2. INFLIXIMAB, RECOMBINANT [Suspect]
     Route: 042
  3. MESALAMINE [Concomitant]
     Route: 048
  4. BUDESONIDE [Concomitant]

REACTIONS (3)
  - APPENDICITIS [None]
  - CONDITION AGGRAVATED [None]
  - CROHN'S DISEASE [None]
